FAERS Safety Report 14616775 (Version 1)
Quarter: 2018Q1

REPORT INFORMATION
  Report Type: Spontaneous
  Country: US (occurrence: US)
  Receive Date: 20180308
  Receipt Date: 20180308
  Transmission Date: 20180509
  Serious: Yes (Other)
  Sender: FDA-Public Use
  Company Number: None

PATIENT
  Age: 59 Year
  Sex: Male

DRUGS (22)
  1. NORCO [Concomitant]
     Active Substance: ACETAMINOPHEN\HYDROCODONE BITARTRATE
  2. HUMIRA [Suspect]
     Active Substance: ADALIMUMAB
     Indication: RHEUMATOID ARTHRITIS
     Dosage: ?          OTHER FREQUENCY:EVERY 2 WEEKS;?
     Route: 058
     Dates: start: 20170921, end: 20180129
  3. CLONAZPEAM [Concomitant]
  4. FENTANYL. [Concomitant]
     Active Substance: FENTANYL
  5. LOPRESSOR [Concomitant]
     Active Substance: METOPROLOL TARTRATE
  6. OMEPRAZOLE. [Concomitant]
     Active Substance: OMEPRAZOLE
  7. METOPROLOL. [Concomitant]
     Active Substance: METOPROLOL
  8. SYMBICORT [Concomitant]
     Active Substance: BUDESONIDE\FORMOTEROL FUMARATE DIHYDRATE
  9. LOTREL [Concomitant]
     Active Substance: AMLODIPINE BESYLATE\BENAZEPRIL HYDROCHLORIDE
  10. ONDANSETRON [Concomitant]
     Active Substance: ONDANSETRON
  11. CLONIDINE. [Concomitant]
     Active Substance: CLONIDINE
  12. FUROSEMIDE. [Concomitant]
     Active Substance: FUROSEMIDE
  13. HYDROXYCHLOROQUINE [Concomitant]
     Active Substance: HYDROXYCHLOROQUINE
  14. AMLODIPINE [Concomitant]
     Active Substance: AMLODIPINE BESYLATE
  15. GABAPENTIN. [Concomitant]
     Active Substance: GABAPENTIN
  16. LEFLUNAMIDE [Concomitant]
     Active Substance: LEFLUNOMIDE
  17. MEPRON [Concomitant]
     Active Substance: ATOVAQUONE
  18. METFORMIN [Concomitant]
     Active Substance: METFORMIN HYDROCHLORIDE
  19. MICRO-K [Concomitant]
     Active Substance: POTASSIUM CHLORIDE
  20. PRAVASTATIN. [Concomitant]
     Active Substance: PRAVASTATIN
  21. PREDNISONE. [Concomitant]
     Active Substance: PREDNISONE
  22. PROCHLORPERAZINE. [Concomitant]
     Active Substance: PROCHLORPERAZINE

REACTIONS (3)
  - Abdominal abscess [None]
  - Bacterial infection [None]
  - Actinomyces test positive [None]

NARRATIVE: CASE EVENT DATE: 20180208
